FAERS Safety Report 6697226-3 (Version None)
Quarter: 2010Q2

REPORT INFORMATION
  Report Type: 
  Country: None (occurrence: None)
  Receive Date: 20100426
  Receipt Date: 20100419
  Transmission Date: 20101027
  Serious: Yes (Hospitalization, Other)
  Sender: FDA-Public Use
  Company Number: ZA-JNJFOC-20100404996

PATIENT
  Age: 57 Year
  Sex: Female

DRUGS (5)
  1. TRAMACET [Suspect]
     Indication: BACK PAIN
     Dosage: A DAY IN EVENING
     Route: 065
  2. SYNAP FORTE [Suspect]
     Indication: BACK PAIN
     Dosage: AT LUNCH
     Route: 065
  3. LENTOGESIC (DEXTROPROPOXYPHENE HCL, PARACET, L-GLUTAMINE) [Suspect]
     Indication: BACK PAIN
     Dosage: IN THE MORNING
     Route: 065
  4. LYRICA [Concomitant]
     Dosage: 75 MG IN THE MORNING
     Route: 065
  5. CORTISONE [Concomitant]
     Route: 042

REACTIONS (9)
  - CARDIAC DISORDER [None]
  - DRUG INEFFECTIVE [None]
  - DYSPNOEA [None]
  - MOVEMENT DISORDER [None]
  - OEDEMA [None]
  - PAIN [None]
  - SLEEP DISORDER [None]
  - SWELLING FACE [None]
  - VIRAL INFECTION [None]
